FAERS Safety Report 14995319 (Version 2)
Quarter: 2018Q4

REPORT INFORMATION
  Report Type: Spontaneous
  Country: US (occurrence: US)
  Receive Date: 20180611
  Receipt Date: 20181228
  Transmission Date: 20190204
  Serious: Yes (Other)
  Sender: FDA-Public Use
  Company Number: US-SA-2018SA017131

PATIENT
  Age: 38 Year
  Sex: Female
  Weight: 87 kg

DRUGS (2)
  1. DOCETAXEL. [Suspect]
     Active Substance: DOCETAXEL
     Dosage: FULL BAG, EXACT DOSAGE UNKNOWN
     Route: 042
     Dates: start: 20120813, end: 20120813
  2. DOCETAXEL. [Suspect]
     Active Substance: DOCETAXEL
     Indication: BREAST CANCER FEMALE
     Dosage: FULL BAG, EXACT DOSAGE UNKNOWN
     Route: 042
     Dates: start: 20120430, end: 20120430

REACTIONS (2)
  - Psychological trauma [Unknown]
  - Alopecia [Recovering/Resolving]

NARRATIVE: CASE EVENT DATE: 201205
